FAERS Safety Report 5335824-X (Version None)
Quarter: 2007Q2

REPORT INFORMATION
  Report Type: 
  Country: None (occurrence: None)
  Receive Date: 20070322
  Receipt Date: 20061109
  Transmission Date: 20071010
  Serious: No
  Sender: FDA-Public Use
  Company Number: US-CVT-062280

PATIENT
  Age: 41 Year
  Sex: Male

DRUGS (16)
  1. RANEXA [Suspect]
     Indication: ANGINA PECTORIS
     Dosage: 500 MG, BID
     Dates: start: 20061024, end: 20061106
  2. PLAVIX [Concomitant]
  3. HUMALOG [Concomitant]
  4. HYDROCHLOROTHIAZIDE [Concomitant]
  5. ALTACE [Concomitant]
  6. COENZYME Q10 [Concomitant]
  7. TOPROL-XL [Concomitant]
  8. ISOSORBIDE MONONITRATE [Concomitant]
  9. XANAX [Concomitant]
  10. LANTUS [Concomitant]
  11. AMBIEN [Concomitant]
  12. FLAX SEED OIL [Concomitant]
  13. ASPIRIN [Concomitant]
  14. FISH OIL (FISH OIL) [Concomitant]
  15. CYMBALTA [Concomitant]
  16. LYRICA [Concomitant]

REACTIONS (3)
  - APATHY [None]
  - HOMICIDAL IDEATION [None]
  - SUICIDAL IDEATION [None]
